FAERS Safety Report 6910025-X (Version None)
Quarter: 2010Q3

REPORT INFORMATION
  Report Type: 
  Country: None (occurrence: None)
  Receive Date: 20100806
  Receipt Date: 20100802
  Transmission Date: 20110219
  Serious: No
  Sender: FDA-Public Use
  Company Number: 2008BI024966

PATIENT
  Age: 51 Year
  Sex: Male

DRUGS (2)
  1. TYSABRI [Suspect]
     Indication: MULTIPLE SCLEROSIS
     Route: 042
     Dates: start: 20080605, end: 20091201
  2. TYSABRI [Suspect]
     Route: 042
     Dates: start: 20100501

REACTIONS (3)
  - HEADACHE [None]
  - MIGRAINE [None]
  - VISUAL IMPAIRMENT [None]
